FAERS Safety Report 17594278 (Version 2)
Quarter: 2023Q4

REPORT INFORMATION
  Report Type: Report from Study
  Country: IT (occurrence: IT)
  Receive Date: 20200327
  Receipt Date: 20231103
  Transmission Date: 20240109
  Serious: Yes (Death, Hospitalization)
  Sender: FDA-Public Use
  Company Number: IT-SA-2020SA061695

PATIENT
  Age: 62 Year
  Sex: Female

DRUGS (8)
  1. IRINOTECAN HYDROCHLORIDE [Suspect]
     Active Substance: IRINOTECAN HYDROCHLORIDE
     Indication: Colorectal cancer metastatic
     Dosage: 260 MG/M2, Q15D
     Route: 042
     Dates: start: 20191218, end: 20191218
  2. IRINOTECAN HYDROCHLORIDE [Suspect]
     Active Substance: IRINOTECAN HYDROCHLORIDE
     Dosage: 260 MG/M2, Q15D
     Route: 042
     Dates: start: 20200102, end: 20200102
  3. FLUOROURACIL [Suspect]
     Active Substance: FLUOROURACIL
     Indication: Colorectal cancer metastatic
     Dosage: 640 MG/M2, Q15D
     Route: 042
     Dates: start: 20200102, end: 20200102
  4. FLUOROURACIL [Suspect]
     Active Substance: FLUOROURACIL
     Dosage: 640 MG/M2, Q15D
     Route: 042
     Dates: start: 20191218, end: 20191218
  5. LEUCOVORIN [Suspect]
     Active Substance: LEUCOVORIN\LEUCOVORIN CALCIUM
     Indication: Colorectal cancer metastatic
     Dosage: 640 MG/M2, Q15D
     Route: 042
     Dates: start: 20191218, end: 20191218
  6. LEUCOVORIN [Suspect]
     Active Substance: LEUCOVORIN\LEUCOVORIN CALCIUM
     Dosage: 640 MG/M2, Q15D
     Route: 042
     Dates: start: 20200102, end: 20200102
  7. AFLIBERCEPT [Suspect]
     Active Substance: AFLIBERCEPT
     Indication: Colorectal cancer metastatic
     Dosage: 260 MG/M2, Q15D
     Route: 042
     Dates: start: 20191218, end: 20191218
  8. AFLIBERCEPT [Suspect]
     Active Substance: AFLIBERCEPT
     Dosage: 260 MG/M2, Q15D
     Route: 042
     Dates: start: 20200102, end: 20200102

REACTIONS (9)
  - Sepsis [Fatal]
  - Pancytopenia [Fatal]
  - Mucosal inflammation [Fatal]
  - General physical health deterioration [Unknown]
  - Hypotension [Unknown]
  - Stomatitis [Unknown]
  - Mouth haemorrhage [Unknown]
  - Dysphagia [Unknown]
  - Hyperpyrexia [Unknown]

NARRATIVE: CASE EVENT DATE: 20200225
